FAERS Safety Report 9856824 (Version 1)
Quarter: 2014Q1

REPORT INFORMATION
  Report Type: Spontaneous
  Country: US (occurrence: US)
  Receive Date: 20140130
  Receipt Date: 20140130
  Transmission Date: 20141002
  Serious: No
  Sender: FDA-Public Use
  Company Number: US-009507513-1401USA010498

PATIENT
  Age: 61 Year
  Sex: Female

DRUGS (2)
  1. COSOPT [Suspect]
     Indication: GLAUCOMA
     Dosage: UNK
     Route: 047
     Dates: start: 20131208, end: 20131222
  2. COSOPT [Suspect]
     Dosage: UNK
     Route: 047
     Dates: start: 20140115

REACTIONS (2)
  - Headache [Recovered/Resolved]
  - Headache [Not Recovered/Not Resolved]
